FAERS Safety Report 4508449-3 (Version None)
Quarter: 2004Q4

REPORT INFORMATION
  Report Type: 
  Country: None (occurrence: None)
  Receive Date: 20041123
  Receipt Date: 20040216
  Transmission Date: 20050328
  Serious: Yes (Hospitalization)
  Sender: FDA-Public Use
  Company Number: US-GLAXOSMITHKLINE-A0498350A

PATIENT
  Age: 38 Year
  Sex: Female
  Weight: 62.7 kg

DRUGS (2)
  1. WELLBUTRIN [Suspect]
     Indication: DEPRESSION
     Route: 048
  2. TESSALON [Suspect]
     Indication: COUGH

REACTIONS (2)
  - AMNESIA [None]
  - GRAND MAL CONVULSION [None]
